FAERS Safety Report 6299363-4 (Version None)
Quarter: 2009Q3

REPORT INFORMATION
  Report Type: 
  Country: None (occurrence: None)
  Receive Date: 20090806
  Receipt Date: 20090727
  Transmission Date: 20100115
  Serious: Yes (Death, Other)
  Sender: FDA-Public Use
  Company Number: PT-ROCHE-646754

PATIENT
  Age: 62 Year
  Sex: Male

DRUGS (3)
  1. MYCOPHENOLATE MOFETIL [Suspect]
     Route: 065
  2. METHYLPREDNISOLONE [Suspect]
     Dosage: PATIENT RECIEVED METHYLPREDNISOLONE PULSES
     Route: 065
  3. PIPERACILLIN SODIUM AND TAZOBACTAM SODIUM [Suspect]
     Route: 065

REACTIONS (3)
  - COCCIDIOIDOMYCOSIS [None]
  - LEUKOPENIA [None]
  - TRANSPLANT REJECTION [None]
